FAERS Safety Report 4663567-4 (Version None)
Quarter: 2005Q2

REPORT INFORMATION
  Report Type: 
  Country: None (occurrence: None)
  Receive Date: 20050511
  Receipt Date: 20050228
  Transmission Date: 20051028
  Serious: Yes (Other)
  Sender: FDA-Public Use
  Company Number: 397132

PATIENT
  Age: 38 Year
  Sex: Female
  Weight: 44.5 kg

DRUGS (5)
  1. PEGASYS [Suspect]
     Indication: HEPATITIS C VIRUS
     Dosage: 1 PER WEEK, SUBCUTANEOUS
     Route: 058
     Dates: start: 20050119
  2. COPEGUS [Suspect]
     Indication: HEPATITIS C VIRUS
     Dosage: 1000 MG DAILY, ORAL
     Route: 048
     Dates: start: 20050119
  3. KLONOPIN [Concomitant]
  4. LAMICTAL [Concomitant]
  5. MILK THISTLE (SILYMARIN) [Concomitant]

REACTIONS (8)
  - AGGRESSION [None]
  - ANGER [None]
  - DEPRESSED MOOD [None]
  - DIZZINESS [None]
  - FATIGUE [None]
  - PLATELET COUNT DECREASED [None]
  - SUICIDAL IDEATION [None]
  - WHITE BLOOD CELL COUNT DECREASED [None]
